FAERS Safety Report 6535226-4 (Version None)
Quarter: 2010Q1

REPORT INFORMATION
  Report Type: 
  Country: None (occurrence: None)
  Receive Date: 20100111
  Receipt Date: 20100111
  Transmission Date: 20100710
  Serious: Yes (Hospitalization)
  Sender: FDA-Public Use
  Company Number: None

PATIENT
  Sex: Male

DRUGS (1)
  1. DIAZEPAM [Suspect]
     Dosage: 5 MG 2 TABS AFT AND HS PO
     Route: 048
     Dates: start: 20100108

REACTIONS (2)
  - PARALYSIS [None]
  - TREMOR [None]
